FAERS Safety Report 10146171 (Version 1)
Quarter: 2014Q2

REPORT INFORMATION
  Report Type: Spontaneous
  Country: CN (occurrence: None)
  Receive Date: 20140429
  Receipt Date: 20140429
  Transmission Date: 20141212
  Serious: Yes (Death)
  Sender: FDA-Public Use
  Company Number: 2014P1003318

PATIENT
  Age: 0 Year
  Sex: Male

DRUGS (1)
  1. CEFTRIAXONE [Suspect]

REACTIONS (2)
  - Hand-foot-and-mouth disease [None]
  - Condition aggravated [None]
